FAERS Safety Report 9267224 (Version 2)
Quarter: 2013Q3

REPORT INFORMATION
  Report Type: Report from Study
  Country: BR (occurrence: BR)
  Receive Date: 20130502
  Receipt Date: 20130705
  Transmission Date: 20140515
  Serious: Yes (Other)
  Sender: FDA-Public Use
  Company Number: BR-ABBOTT-13P-020-1080899-00

PATIENT
  Age: 34 Year
  Sex: Female
  Weight: 55 kg

DRUGS (8)
  1. HUMIRA [Suspect]
     Indication: RHEUMATOID ARTHRITIS
     Route: 058
  2. HUMIRA [Suspect]
     Dates: start: 201209, end: 201209
  3. HUMIRA [Suspect]
     Dates: start: 201303
  4. PREDNISONE [Concomitant]
     Indication: ARTHRITIS
     Route: 048
     Dates: start: 2005
  5. NIMESULIDE [Concomitant]
     Indication: PAIN
     Dosage: AS NEEDED, IF PAIN
     Route: 048
     Dates: start: 201210
  6. TAPAZOLE [Concomitant]
     Indication: THYROID DISORDER
     Route: 048
     Dates: start: 201301
  7. PROPRANOLOL [Concomitant]
     Indication: HYPERTENSION
     Route: 048
     Dates: start: 201301
  8. OLCADIL [Concomitant]
     Indication: ANXIETY
     Route: 048

REACTIONS (22)
  - Deafness [Recovered/Resolved]
  - Memory impairment [Recovered/Resolved]
  - Weight decreased [Recovering/Resolving]
  - Decreased appetite [Recovering/Resolving]
  - Cough [Recovered/Resolved]
  - Feeling hot [Recovered/Resolved]
  - Tachycardia [Recovered/Resolved]
  - Chest pain [Recovered/Resolved]
  - Pain [Recovering/Resolving]
  - Abdominal pain [Recovered/Resolved]
  - Diarrhoea [Recovered/Resolved]
  - Pyrexia [Recovering/Resolving]
  - Malaise [Recovering/Resolving]
  - Emotional distress [Recovering/Resolving]
  - Anxiety [Recovering/Resolving]
  - Asthenia [Recovered/Resolved]
  - Somnolence [Recovering/Resolving]
  - Fatigue [Recovering/Resolving]
  - Pain in extremity [Recovering/Resolving]
  - Pain in extremity [Recovering/Resolving]
  - Feeling abnormal [Unknown]
  - Adverse reaction [Unknown]
